FAERS Safety Report 4426160-4 (Version None)
Quarter: 2004Q3

REPORT INFORMATION
  Report Type: 
  Country: None (occurrence: None)
  Receive Date: 20040811
  Receipt Date: 20040728
  Transmission Date: 20050211
  Serious: Yes (Hospitalization)
  Sender: FDA-Public Use
  Company Number: US_031198974

PATIENT
  Age: 54 Year
  Sex: Male
  Weight: 103 kg

DRUGS (6)
  1. HUMATROPE [Suspect]
     Indication: GROWTH HORMONE DEFICIENCY
     Dosage: 0.41 MG/1 DAY
     Dates: start: 19980814, end: 20031008
  2. OXYBUTYNIN CHLORIDE [Concomitant]
  3. LANSOPRAZOLE [Concomitant]
  4. FOLIC ACID [Concomitant]
  5. MULTI-VITAMIN [Concomitant]
  6. TESTODERM [Concomitant]

REACTIONS (2)
  - CONDITION AGGRAVATED [None]
  - LOCALISED OSTEOARTHRITIS [None]
